FAERS Safety Report 6874952-4 (Version None)
Quarter: 2010Q3

REPORT INFORMATION
  Report Type: 
  Country: None (occurrence: None)
  Receive Date: 20100723
  Receipt Date: 20100709
  Transmission Date: 20110219
  Serious: Yes (Other)
  Sender: FDA-Public Use
  Company Number: 1000015165

PATIENT
  Age: 18 Year
  Sex: Female
  Weight: 90 kg

DRUGS (1)
  1. CITALOPRAM HYDROBROMIDE [Suspect]
     Dosage: (80 MG) ,ORAL
     Route: 048
     Dates: start: 20100709, end: 20100709

REACTIONS (4)
  - DRUG ABUSE [None]
  - INTENTIONAL OVERDOSE [None]
  - MALAISE [None]
  - NAUSEA [None]
